FAERS Safety Report 9476075 (Version 1)
Quarter: 2013Q3

REPORT INFORMATION
  Report Type: Spontaneous
  Country: IT (occurrence: IT)
  Receive Date: 20130826
  Receipt Date: 20130826
  Transmission Date: 20140515
  Serious: Yes (Other)
  Sender: FDA-Public Use
  Company Number: IT-ROCHE-1265532

PATIENT
  Age: 79 Year
  Sex: Female

DRUGS (1)
  1. AVASTIN [Suspect]
     Indication: CHEMOTHERAPY
     Route: 042
     Dates: start: 20121010, end: 20130710

REACTIONS (2)
  - Cholestasis [Unknown]
  - Hepatocellular injury [Unknown]
